FAERS Safety Report 6524472-1 (Version None)
Quarter: 2010Q1

REPORT INFORMATION
  Report Type: 
  Country: None (occurrence: None)
  Receive Date: 20100104
  Receipt Date: 20091201
  Transmission Date: 20100710
  Serious: No
  Sender: FDA-Public Use
  Company Number: US-BAYER-200917394BCC

PATIENT
  Age: 90 Year
  Sex: Female
  Weight: 57 kg

DRUGS (5)
  1. ALEVE [Suspect]
     Indication: SPONDYLITIS
     Dosage: TOTAL DAILY DOSE: 220 MG  UNIT DOSE: 220 MG
     Route: 048
     Dates: start: 20091120, end: 20091127
  2. MIRAPEX [Concomitant]
     Route: 065
  3. FLOMAX [Concomitant]
     Route: 065
  4. THYROXALINE [Concomitant]
     Route: 065
  5. UNKNOWN BLOOD PRESSURE MEDICATION [Concomitant]
     Route: 065

REACTIONS (1)
  - ABDOMINAL PAIN UPPER [None]
